FAERS Safety Report 4755489-5 (Version None)
Quarter: 2005Q3

REPORT INFORMATION
  Report Type: 
  Country: None (occurrence: None)
  Receive Date: 20050829
  Receipt Date: 20050815
  Transmission Date: 20060218
  Serious: Yes (Hospitalization)
  Sender: FDA-Public Use
  Company Number: 2005115198

PATIENT
  Age: 18 Year
  Sex: Female

DRUGS (2)
  1. BENADRYL [Suspect]
     Indication: INTENTIONAL MISUSE
     Dosage: 8 TABS ONCE, ORAL
     Route: 048
     Dates: start: 20050815, end: 20050815
  2. BENADRYL [Suspect]
     Indication: OVERDOSE
     Dosage: 8 TABS ONCE, ORAL
     Route: 048
     Dates: start: 20050815, end: 20050815

REACTIONS (5)
  - DIZZINESS [None]
  - DRUG EXPOSURE DURING PREGNANCY [None]
  - HEADACHE [None]
  - OVERDOSE [None]
  - SOMNOLENCE [None]
